FAERS Safety Report 9719640 (Version 1)
Quarter: 2013Q4

REPORT INFORMATION
  Report Type: Spontaneous
  Country: AU (occurrence: AU)
  Receive Date: 20131128
  Receipt Date: 20131128
  Transmission Date: 20140711
  Serious: Yes (Other)
  Sender: FDA-Public Use
  Company Number: AU-ROCHE-1307014

PATIENT
  Age: 62 Year
  Sex: 0

DRUGS (11)
  1. CEFTRIAXONE [Suspect]
     Indication: PRODUCT USED FOR UNKNOWN INDICATION
     Route: 065
  2. VANCOMYCIN HYDROCHLORIDE [Suspect]
     Indication: PRODUCT USED FOR UNKNOWN INDICATION
     Route: 065
  3. FENTANYL [Concomitant]
  4. GENTAMICIN SULPHATE [Concomitant]
     Route: 065
  5. METARAMINOL TARTRATE [Concomitant]
     Route: 065
  6. MIDAZOLAM ROCHE UNSPEC. [Concomitant]
     Route: 065
  7. MORPHINE [Concomitant]
     Route: 065
  8. PARACETAMOL [Concomitant]
     Route: 065
  9. PROPOFOL [Concomitant]
     Route: 065
  10. ROCURONIUM BROMIDE [Concomitant]
     Route: 065
  11. DEXAMETHASONE [Concomitant]

REACTIONS (1)
  - Hypotension [Recovered/Resolved]
